FAERS Safety Report 8543438-3 (Version None)
Quarter: 2012Q3

REPORT INFORMATION
  Report Type: 
  Country: None (occurrence: None)
  Receive Date: 20120727
  Receipt Date: 20120723
  Transmission Date: 20120928
  Serious: No
  Sender: FDA-Public Use
  Company Number: US-PFIZER INC-2012160198

PATIENT
  Sex: Female
  Weight: 74.83 kg

DRUGS (4)
  1. ADVIL [Suspect]
     Indication: SPINAL OSTEOARTHRITIS
     Dosage: 200 MG, UNK
     Route: 048
     Dates: start: 20120601
  2. FISH OIL [Suspect]
     Indication: VITAMIN SUPPLEMENTATION
     Dosage: UNK
     Dates: end: 20120601
  3. ADVIL [Suspect]
     Dosage: 800 MG (FOUR TABLETS OF 200MG) WITHIN AN HOUR
     Dates: start: 20120703
  4. ADVIL [Suspect]
     Dosage: 800 MG, UNK (FOUR ADVIL IN 10 MINUTES)
     Dates: start: 20120101

REACTIONS (4)
  - DRUG INEFFECTIVE [None]
  - SPINAL OSTEOARTHRITIS [None]
  - MALAISE [None]
  - ACCIDENTAL EXPOSURE [None]
